FAERS Safety Report 15169365 (Version 1)
Quarter: 2018Q3

REPORT INFORMATION
  Report Type: Spontaneous
  Country: IT (occurrence: IT)
  Receive Date: 20180720
  Receipt Date: 20180720
  Transmission Date: 20181010
  Serious: Yes (Hospitalization)
  Sender: FDA-Public Use
  Company Number: IT-TEVA-2018-IT-928646

PATIENT
  Age: 21 Year
  Sex: Female

DRUGS (4)
  1. VALDORM (FLURAZEPAM HYDROCHLORIDE) [Suspect]
     Active Substance: FLURAZEPAM HYDROCHLORIDE
     Route: 048
     Dates: start: 20180503, end: 20180503
  2. VENLAFAXINE [Suspect]
     Active Substance: VENLAFAXINE HYDROCHLORIDE
     Route: 048
     Dates: start: 20180503, end: 20180503
  3. TAPAZOLE [Concomitant]
     Active Substance: METHIMAZOLE
     Indication: HYPERTHYROIDISM
     Route: 048
     Dates: start: 20170101
  4. DELORAZEPAM ABC 1 MG/ML GOCCE ORALI, SOLUZIONE [Suspect]
     Active Substance: DELORAZEPAM
     Route: 048
     Dates: start: 20180503, end: 20180503

REACTIONS (1)
  - Drug abuser [Unknown]

NARRATIVE: CASE EVENT DATE: 20180503
